FAERS Safety Report 7794337-6 (Version None)
Quarter: 2011Q4

REPORT INFORMATION
  Report Type: 
  Country: None (occurrence: None)
  Receive Date: 20111004
  Receipt Date: 20111004
  Transmission Date: 20120403
  Serious: Yes (Other)
  Sender: FDA-Public Use
  Company Number: CR-PFIZER INC-2011232742

PATIENT
  Age: 53 Year
  Sex: Male

DRUGS (3)
  1. ALPRAZOLAM [Suspect]
     Indication: NIGHTMARE
  2. ALPRAZOLAM [Suspect]
     Indication: HIATUS HERNIA
     Dosage: 1 MG, UNK
     Route: 048
     Dates: start: 20100101, end: 20110101
  3. ALPRAZOLAM [Suspect]
     Indication: MIGRAINE
     Dosage: 2 MG, DAILY
     Route: 048
     Dates: start: 20110601

REACTIONS (7)
  - ANGER [None]
  - FEAR [None]
  - TREMOR [None]
  - BOREDOM [None]
  - MOOD ALTERED [None]
  - ASTHENIA [None]
  - MENTAL DISORDER [None]
